FAERS Safety Report 8960836 (Version 1)
Quarter: 2012Q4

REPORT INFORMATION
  Report Type: Spontaneous
  Country: US (occurrence: None)
  Receive Date: 20121211
  Receipt Date: 20121211
  Transmission Date: 20130627
  Serious: Yes (Death, Other)
  Sender: FDA-Public Use
  Company Number: None

PATIENT
  Age: 55 Year
  Sex: Male
  Weight: 106.6 kg

DRUGS (1)
  1. PRADAX [Suspect]
     Indication: ATRIAL FIBRILLATION
     Route: 048
     Dates: start: 20120412, end: 20120423

REACTIONS (7)
  - Haemorrhage [None]
  - Cardiac arrest [None]
  - Loss of consciousness [None]
  - Cardiac failure [None]
  - Fluid retention [None]
  - Dyspnoea [None]
  - Loss of employment [None]
